FAERS Safety Report 17479478 (Version 1)
Quarter: 2020Q1

REPORT INFORMATION
  Report Type: Spontaneous
  Country: US (occurrence: US)
  Receive Date: 20200228
  Receipt Date: 20200228
  Transmission Date: 20200409
  Serious: No
  Sender: FDA-Public Use
  Company Number: US-ASTRAZENECA-2020SE22807

PATIENT
  Age: 23618 Day
  Sex: Male
  Weight: 81.6 kg

DRUGS (1)
  1. BYDUREON BCISE [Suspect]
     Active Substance: EXENATIDE
     Indication: INSULIN-REQUIRING TYPE 2 DIABETES MELLITUS
     Route: 058
     Dates: start: 202001

REACTIONS (4)
  - Product dose omission [Not Recovered/Not Resolved]
  - Injection site urticaria [Unknown]
  - Injection site mass [Unknown]
  - Device issue [Unknown]

NARRATIVE: CASE EVENT DATE: 20200203
